FAERS Safety Report 4980676-0 (Version None)
Quarter: 2006Q2

REPORT INFORMATION
  Report Type: 
  Country: None (occurrence: None)
  Receive Date: 20060424
  Receipt Date: 20051004
  Transmission Date: 20061013
  Serious: Yes (Hospitalization)
  Sender: FDA-Public Use
  Company Number: US-MERCK-0510USA03231

PATIENT
  Age: 79 Year
  Sex: Female
  Weight: 73 kg

DRUGS (1)
  1. VIOXX [Suspect]
     Indication: ARTHRITIS
     Route: 048
     Dates: start: 20001001, end: 20040201

REACTIONS (16)
  - ABDOMINAL PAIN [None]
  - BILIARY DILATATION [None]
  - CARDIAC DISORDER [None]
  - CEREBROVASCULAR ACCIDENT [None]
  - CONFUSIONAL STATE [None]
  - DEHYDRATION [None]
  - DILATATION INTRAHEPATIC DUCT ACQUIRED [None]
  - GALLBLADDER DISORDER [None]
  - HEPATOMEGALY [None]
  - HERNIA [None]
  - LIVER DISORDER [None]
  - LUMBAR VERTEBRAL FRACTURE [None]
  - OSTEOPOROSIS [None]
  - SPINAL COMPRESSION FRACTURE [None]
  - THORACIC VERTEBRAL FRACTURE [None]
  - URINARY TRACT INFECTION [None]
